FAERS Safety Report 9693218 (Version 1)
Quarter: 2013Q4

REPORT INFORMATION
  Report Type: Spontaneous
  Country: US (occurrence: None)
  Receive Date: 20131115
  Receipt Date: 20131115
  Transmission Date: 20140711
  Serious: No
  Sender: FDA-Public Use
  Company Number: None

PATIENT
  Age: 58 Year
  Sex: Male

DRUGS (5)
  1. AUGMENTIN [Suspect]
     Dates: start: 20120221, end: 20120227
  2. CYTOMEL [Concomitant]
  3. LEVOTHYROXINE [Concomitant]
  4. VITAMIN B COMPLEX [Concomitant]
  5. VITAMIN D [Concomitant]

REACTIONS (1)
  - Drug-induced liver injury [None]
